FAERS Safety Report 17730599 (Version 1)
Quarter: 2020Q2

REPORT INFORMATION
  Report Type: Spontaneous
  Country: GB (occurrence: GB)
  Receive Date: 20200430
  Receipt Date: 20200430
  Transmission Date: 20200714
  Serious: Yes (Death, Hospitalization, Other)
  Sender: FDA-Public Use
  Company Number: NVSC2020GB116171

PATIENT
  Age: 67 Year
  Sex: Male

DRUGS (3)
  1. CABAZITAXEL [Suspect]
     Active Substance: CABAZITAXEL
     Indication: PROSTATE CANCER METASTATIC
     Dosage: UNK, CYCLIC
     Route: 042
     Dates: start: 20190218, end: 20190218
  2. DOCETAXEL. [Suspect]
     Active Substance: DOCETAXEL
     Dosage: UNK, CYCLIC
     Route: 065
     Dates: start: 20190109, end: 20190109
  3. DOCETAXEL. [Suspect]
     Active Substance: DOCETAXEL
     Indication: PROSTATE CANCER METASTATIC
     Dosage: UNK UNK, CYCLIC
     Route: 042
     Dates: start: 20180509, end: 20180509

REACTIONS (4)
  - Hydronephrosis [Fatal]
  - Humerus fracture [Fatal]
  - Pneumonia [Fatal]
  - Sepsis [Fatal]

NARRATIVE: CASE EVENT DATE: 20180801
